FAERS Safety Report 4980480-3 (Version None)
Quarter: 2006Q2

REPORT INFORMATION
  Report Type: 
  Country: None (occurrence: None)
  Receive Date: 20060424
  Receipt Date: 20060412
  Transmission Date: 20061013
  Serious: Yes (Hospitalization)
  Sender: FDA-Public Use
  Company Number: US-SANOFI-SYNTHELABO-A03200602273

PATIENT
  Sex: Female

DRUGS (1)
  1. AMBIEN [Suspect]
     Indication: INSOMNIA
     Dosage: UNK
     Route: 048

REACTIONS (6)
  - AMNESIA [None]
  - ANKLE FRACTURE [None]
  - FOOT FRACTURE [None]
  - HYPERSOMNIA [None]
  - OPEN FRACTURE [None]
  - SLEEP WALKING [None]
